FAERS Safety Report 17934724 (Version 1)
Quarter: 2020Q2

REPORT INFORMATION
  Report Type: Spontaneous
  Country: HU (occurrence: HU)
  Receive Date: 20200624
  Receipt Date: 20200624
  Transmission Date: 20200714
  Serious: Yes (Death, Other)
  Sender: FDA-Public Use
  Company Number: HU-BRISTOL-MYERS SQUIBB COMPANY-BMS-2020-048610

PATIENT
  Sex: Male

DRUGS (2)
  1. OPDIVO [Suspect]
     Active Substance: NIVOLUMAB
     Indication: PRODUCT USED FOR UNKNOWN INDICATION
     Dosage: 480 MILLIGRAM, Q4WK
     Route: 042
     Dates: start: 20200417
  2. OPDIVO [Suspect]
     Active Substance: NIVOLUMAB
     Indication: NON-SMALL CELL LUNG CANCER
     Dosage: 240 MILLIGRAM, Q2WK
     Route: 042
     Dates: start: 20200215

REACTIONS (10)
  - Pneumonia [Unknown]
  - Autoimmune dermatitis [Recovered/Resolved]
  - Prescribed overdose [Unknown]
  - Alveolitis [Unknown]
  - Joint swelling [Unknown]
  - Creatinine renal clearance increased [Unknown]
  - Off label use [Unknown]
  - Pyrexia [Unknown]
  - C-reactive protein increased [Unknown]
  - Rash [Unknown]

NARRATIVE: CASE EVENT DATE: 20200615
